FAERS Safety Report 15267479 (Version 1)
Quarter: 2018Q3

REPORT INFORMATION
  Report Type: Spontaneous
  Country: US (occurrence: US)
  Receive Date: 20180811
  Receipt Date: 20180811
  Transmission Date: 20181010
  Serious: Yes (Hospitalization)
  Sender: FDA-Public Use
  Company Number: US-JNJFOC-20180731067

PATIENT
  Age: 55 Year
  Sex: Female
  Weight: 133.4 kg

DRUGS (4)
  1. FARLETUZUMAB [Concomitant]
     Active Substance: FARLETUZUMAB
     Indication: OVARIAN CANCER
     Route: 042
     Dates: start: 20180502, end: 201805
  2. CARBOPLATIN. [Suspect]
     Active Substance: CARBOPLATIN
     Indication: OVARIAN CANCER
     Dosage: DOSE: 5 AUC
     Route: 042
     Dates: start: 20180502, end: 20180627
  3. FARLETUZUMAB [Concomitant]
     Active Substance: FARLETUZUMAB
     Indication: OVARIAN CANCER
     Route: 042
     Dates: start: 201805, end: 201805
  4. DOXORUBICIN HYDROCHLORIDE. [Suspect]
     Active Substance: DOXORUBICIN HYDROCHLORIDE
     Indication: OVARIAN CANCER
     Route: 042
     Dates: start: 20180502, end: 20180502

REACTIONS (1)
  - Infusion related reaction [Recovered/Resolved]

NARRATIVE: CASE EVENT DATE: 20180502
